FAERS Safety Report 5900190-5 (Version None)
Quarter: 2008Q3

REPORT INFORMATION
  Report Type: 
  Country: None (occurrence: None)
  Receive Date: 20080924
  Receipt Date: 20080917
  Transmission Date: 20090109
  Serious: Yes (Congenital Anomaly, Other)
  Sender: FDA-Public Use
  Company Number: WAES 0809USA03281

PATIENT
  Sex: Female

DRUGS (5)
  1. PRINIVIL [Suspect]
     Indication: HYPERTENSION
     Dosage: PO
     Route: 048
  2. NIFEDIPINE [Suspect]
  3. DIHYDRALAZINESO4 [Concomitant]
  4. METOPROLOL TARTRATE [Concomitant]
  5. PROPRANOLOL HYDROCHLORIDE [Concomitant]

REACTIONS (4)
  - CAESAREAN SECTION [None]
  - DRUG EXPOSURE DURING PREGNANCY [None]
  - PREGNANCY INDUCED HYPERTENSION [None]
  - PREMATURE BABY [None]
